FAERS Safety Report 15545927 (Version 1)
Quarter: 2018Q4

REPORT INFORMATION
  Report Type: Spontaneous
  Country: FR (occurrence: FR)
  Receive Date: 20181024
  Receipt Date: 20181024
  Transmission Date: 20190205
  Serious: Yes (Death)
  Sender: FDA-Public Use
  Company Number: FR-PURDUE-GBR-2018-0060633

PATIENT
  Age: 71 Year
  Sex: Male

DRUGS (3)
  1. MIDAZOLAM [Suspect]
     Active Substance: MIDAZOLAM HYDROCHLORIDE
     Indication: PRODUCT ORIGIN UNKNOWN
     Dosage: UNK
     Route: 065
     Dates: end: 2016
  2. PROPOFOL. [Suspect]
     Active Substance: PROPOFOL
     Indication: PRODUCT ORIGIN UNKNOWN
     Dosage: UNK
     Route: 065
     Dates: end: 2016
  3. MORPHINE SULFATE. [Suspect]
     Active Substance: MORPHINE SULFATE
     Indication: PRODUCT ORIGIN UNKNOWN
     Dosage: UNK
     Route: 065
     Dates: end: 2016

REACTIONS (1)
  - Death [Fatal]

NARRATIVE: CASE EVENT DATE: 2016
